FAERS Safety Report 11108743 (Version 2)
Quarter: 2015Q3

REPORT INFORMATION
  Report Type: Spontaneous
  Country: US (occurrence: None)
  Receive Date: 20150511
  Receipt Date: 20150709
  Transmission Date: 20151125
  Serious: Yes (Death, Life-Threatening, Hospitalization)
  Sender: FDA-Public Use
  Company Number: 1224850-2015-00018

PATIENT
  Age: 40 Year
  Sex: Male
  Weight: 99.9 kg

DRUGS (9)
  1. NATURALYTE [Concomitant]
     Active Substance: ACETIC ACID\SODIUM ACETATE
  2. COMBISET BLOODLINES [Concomitant]
  3. HYRALAZINE [Concomitant]
  4. OPTIFLUX DIALYZER [Concomitant]
     Active Substance: DEVICE
  5. SENSIPAR [Concomitant]
     Active Substance: CINACALCET HYDROCHLORIDE
  6. CLONIDIN [Concomitant]
  7. 2008K HEMODIALYSIS SYSTEM [Concomitant]
     Active Substance: DEVICE
  8. TOPROL XL [Concomitant]
     Active Substance: METOPROLOL SUCCINATE
  9. PHOSLO [Suspect]
     Active Substance: CALCIUM ACETATE
     Indication: CHRONIC KIDNEY DISEASE
     Dates: start: 20150321

REACTIONS (6)
  - Cardiac arrest [None]
  - Hypertensive crisis [None]
  - Ventricular fibrillation [None]
  - Electrocardiogram T wave peaked [None]
  - Unresponsive to stimuli [None]
  - Pain [None]

NARRATIVE: CASE EVENT DATE: 20150321
